FAERS Safety Report 10690375 (Version 1)
Quarter: 2015Q1

REPORT INFORMATION
  Report Type: Spontaneous
  Country: US (occurrence: US)
  Receive Date: 20150105
  Receipt Date: 20150105
  Transmission Date: 20150720
  Serious: Yes (Other)
  Sender: FDA-Public Use
  Company Number: US-WATSON-2014-27734

PATIENT
  Sex: Male

DRUGS (1)
  1. TESTOSTERONE CYPIONATE (WATSON LABORATORIES) [Suspect]
     Active Substance: TESTOSTERONE CYPIONATE
     Indication: HYPOGONADISM MALE
     Dosage: UNK, UNKNOWN
     Route: 065

REACTIONS (11)
  - Depression [Unknown]
  - Mania [Unknown]
  - Judgement impaired [Unknown]
  - Somnolence [Unknown]
  - Feeling abnormal [Unknown]
  - Crying [Unknown]
  - Headache [Unknown]
  - Abnormal behaviour [Unknown]
  - Confusional state [Unknown]
  - Disinhibition [Unknown]
  - Anger [Unknown]
